FAERS Safety Report 7318678-1 (Version None)
Quarter: 2011Q1

REPORT INFORMATION
  Report Type: 
  Country: None (occurrence: None)
  Receive Date: 20110228
  Receipt Date: 20110221
  Transmission Date: 20110831
  Serious: Yes (Hospitalization)
  Sender: FDA-Public Use
  Company Number: IT-AMGEN-ITASP2011010048

PATIENT
  Age: 66 Year
  Sex: Female

DRUGS (2)
  1. RETACRIT [Concomitant]
     Dosage: UNK
     Route: 058
     Dates: start: 20100908, end: 20101101
  2. VECTIBIX [Suspect]
     Indication: COLON CANCER METASTATIC
     Dosage: 750 MG, QWK
     Route: 042
     Dates: start: 20100908, end: 20101117

REACTIONS (1)
  - ANAEMIA [None]
